FAERS Safety Report 7893528-3 (Version None)
Quarter: 2011Q4

REPORT INFORMATION
  Report Type: 
  Country: None (occurrence: None)
  Receive Date: 20111104
  Receipt Date: 20111028
  Transmission Date: 20120403
  Serious: Yes (Other)
  Sender: FDA-Public Use
  Company Number: GB-PFIZER INC-2011230725

PATIENT
  Age: 29 Year
  Sex: Male

DRUGS (1)
  1. BENEFIX [Suspect]
     Indication: FACTOR IX DEFICIENCY
     Dosage: 5000 IU, 1X/DAY, ON DEMAND
     Route: 042

REACTIONS (1)
  - ARTHRITIS BACTERIAL [None]
